FAERS Safety Report 15375211 (Version 16)
Quarter: 2020Q2

REPORT INFORMATION
  Report Type: Spontaneous
  Country: BR (occurrence: BR)
  Receive Date: 20180912
  Receipt Date: 20200626
  Transmission Date: 20200713
  Serious: Yes (Hospitalization, Other)
  Sender: FDA-Public Use
  Company Number: BR-GLAXOSMITHKLINE-BR2018GSK164161

PATIENT
  Age: 50 Year
  Sex: Female
  Weight: 92 kg

DRUGS (4)
  1. BENLYSTA [Suspect]
     Active Substance: BELIMUMAB
     Indication: SYSTEMIC LUPUS ERYTHEMATOSUS
     Dosage: 1000 MG, UNK
     Dates: start: 20180716
  2. BENLYSTA [Suspect]
     Active Substance: BELIMUMAB
     Dosage: 890 MG, UNK
  3. BENLYSTA [Suspect]
     Active Substance: BELIMUMAB
     Dosage: 820 MG, UNK
  4. BENLYSTA [Suspect]
     Active Substance: BELIMUMAB
     Dosage: 830 MG, UNK

REACTIONS (31)
  - Ear pain [Unknown]
  - Head discomfort [Unknown]
  - Therapeutic product effect delayed [Unknown]
  - Product administration error [Unknown]
  - Quarantine [Unknown]
  - Social problem [Unknown]
  - Urinary tract infection [Recovered/Resolved]
  - Blood pressure decreased [Unknown]
  - Weight increased [Unknown]
  - Oropharyngeal pain [Unknown]
  - Product dose omission [Unknown]
  - Headache [Unknown]
  - Circumstance or information capable of leading to medication error [Recovered/Resolved]
  - Product storage error [Unknown]
  - Ear infection [Unknown]
  - Menstruation irregular [Unknown]
  - Fatigue [Recovered/Resolved]
  - Renal pain [Not Recovered/Not Resolved]
  - Swelling [Unknown]
  - Malaise [Recovered/Resolved]
  - Arthralgia [Unknown]
  - Overdose [Unknown]
  - Inappropriate schedule of product administration [Recovered/Resolved]
  - Influenza like illness [Recovered/Resolved]
  - Pyelonephritis [Recovered/Resolved]
  - Pain [Recovered/Resolved]
  - Systemic lupus erythematosus [Recovered/Resolved]
  - Nephrolithiasis [Recovered/Resolved]
  - Fall [Unknown]
  - Limb discomfort [Unknown]
  - Nasopharyngitis [Unknown]

NARRATIVE: CASE EVENT DATE: 201810
